FAERS Safety Report 8985808 (Version 1)
Quarter: 2012Q4

REPORT INFORMATION
  Report Type: 
  Country: GB (occurrence: GB)
  Receive Date: 20121226
  Receipt Date: 20121226
  Transmission Date: 20130627
  Serious: Yes (Other)
  Sender: FDA-Public Use
  Company Number: PHHY2012GB118175

PATIENT
  Age: 53 Year
  Sex: Male
  Weight: 93.4 kg

DRUGS (3)
  1. AMOXICILLIN [Suspect]
     Dates: start: 20121211
  2. CLARITHROMYCIN [Concomitant]
     Dates: start: 20121207
  3. PREDNISOLONE [Concomitant]
     Dates: start: 20121207, end: 20121208

REACTIONS (4)
  - Eye pain [Recovered/Resolved]
  - Ocular hyperaemia [Recovered/Resolved]
  - Lacrimation increased [Recovered/Resolved]
  - Photophobia [Recovered/Resolved]
